FAERS Safety Report 6104289-2 (Version None)
Quarter: 2009Q1

REPORT INFORMATION
  Report Type: 
  Country: None (occurrence: None)
  Receive Date: 20090305
  Receipt Date: 20090223
  Transmission Date: 20090719
  Serious: Yes (Hospitalization)
  Sender: FDA-Public Use
  Company Number: US-ELI_LILLY_AND_COMPANY-US200902006760

PATIENT
  Sex: Female

DRUGS (12)
  1. FORTEO [Suspect]
     Indication: OSTEOPOROSIS
     Dosage: UNK, UNK
  2. PLAVIX [Concomitant]
     Dosage: 75 MG, DAILY (1/D)
  3. COLACE [Concomitant]
     Dosage: 100 MG, 2/D
  4. DONEPEZIL HYDROCHLORIDE [Concomitant]
  5. HEPARIN [Concomitant]
     Dosage: 5000 IU, 2/D
  6. HYDROCHLOROTHIAZIDE [Concomitant]
     Dosage: 12.5 MG, DAILY (1/D)
  7. LIDOCAINE [Concomitant]
     Dosage: EVERY 12 HOURS, AS NEEDED
  8. METOPROLOL SUCCINATE [Concomitant]
     Dosage: 100 MG, DAILY (1/D)
  9. PROTONIX [Concomitant]
     Dosage: UNK, DAILY (1/D)
  10. POTASSIUM CHLORIDE [Concomitant]
     Dosage: 20, DAILY (1/D)
  11. TYLENOL                                 /SCH/ [Concomitant]
     Dosage: 650 MG, AS NEEDED
  12. MORPHINE SULFATE [Concomitant]
     Dosage: AS NEEDED EVERY FOUR HOURS

REACTIONS (1)
  - SURGERY [None]
